FAERS Safety Report 12627576 (Version 1)
Quarter: 2016Q3

REPORT INFORMATION
  Report Type: Report from Study
  Country: RO (occurrence: RO)
  Receive Date: 20160805
  Receipt Date: 20160805
  Transmission Date: 20161109
  Serious: Yes (Hospitalization)
  Sender: FDA-Public Use
  Company Number: RO-ABBVIE-16P-135-1691638-00

PATIENT
  Age: 64 Year
  Sex: Female

DRUGS (8)
  1. MODERIBA [Suspect]
     Active Substance: RIBAVIRIN
     Indication: HEPATIC CIRRHOSIS
  2. LAGOSA [Concomitant]
     Indication: LIVER DISORDER
     Route: 048
     Dates: start: 20160704
  3. VIEKIRAX [Suspect]
     Active Substance: OMBITASVIR\PARITAPREVIR\RITONAVIR
     Indication: HEPATITIS C
     Dosage: 2-0-0
     Route: 048
     Dates: start: 20160609
  4. VIEKIRAX [Suspect]
     Active Substance: OMBITASVIR\PARITAPREVIR\RITONAVIR
     Indication: HEPATIC CIRRHOSIS
  5. EXVIERA [Suspect]
     Active Substance: DASABUVIR
     Indication: HEPATITIS C
     Dosage: 1-0-1
     Route: 048
     Dates: start: 20160609
  6. MODERIBA [Suspect]
     Active Substance: RIBAVIRIN
     Indication: HEPATITIS C
     Route: 048
     Dates: start: 20160609
  7. EXVIERA [Suspect]
     Active Substance: DASABUVIR
     Indication: HEPATIC CIRRHOSIS
  8. VEROSPIRON [Concomitant]
     Active Substance: SPIRONOLACTONE
     Indication: WATER POLLUTION
     Route: 048
     Dates: start: 20160704

REACTIONS (14)
  - Headache [Recovered/Resolved]
  - Faeces discoloured [Recovering/Resolving]
  - Anaemia [Recovered/Resolved]
  - Nausea [Recovering/Resolving]
  - Dizziness [Recovering/Resolving]
  - Skin exfoliation [Recovered/Resolved]
  - Gastrointestinal disorder [Recovering/Resolving]
  - Weight decreased [Recovering/Resolving]
  - Mydriasis [Recovered/Resolved]
  - Brain oedema [Recovered/Resolved]
  - Visual acuity reduced [Not Recovered/Not Resolved]
  - Fatigue [Recovering/Resolving]
  - Drug administration error [Recovered/Resolved]
  - Cholestasis [Recovering/Resolving]

NARRATIVE: CASE EVENT DATE: 20160609
